FAERS Safety Report 9772114 (Version 1)
Quarter: 2013Q4

REPORT INFORMATION
  Report Type: Spontaneous
  Country: US (occurrence: None)
  Receive Date: 20131218
  Receipt Date: 20131218
  Transmission Date: 20140711
  Serious: Yes (Other)
  Sender: FDA-Public Use
  Company Number: None

PATIENT
  Age: 25 Year
  Sex: Male
  Weight: 80.74 kg

DRUGS (1)
  1. MIRVASO [Suspect]
     Indication: ROSACEA
     Dosage: OID ONCE DAILY APPLIED TO A SURFACE, USUALLY THE SKIN
     Dates: start: 20131202, end: 20131206

REACTIONS (2)
  - Rosacea [None]
  - Condition aggravated [None]
